FAERS Safety Report 4327529-9 (Version None)
Quarter: 2004Q1

REPORT INFORMATION
  Report Type: 
  Country: None (occurrence: None)
  Receive Date: 20040325
  Receipt Date: 20040312
  Transmission Date: 20041129
  Serious: Yes (Hospitalization)
  Sender: FDA-Public Use
  Company Number: 2004PK00513

PATIENT
  Age: 67 Year
  Sex: Male

DRUGS (13)
  1. NEXIUM [Suspect]
     Indication: PROPHYLAXIS AGAINST GASTROINTESTINAL ULCER
     Dosage: 40 MG DAILY PO
     Route: 048
  2. SINTROM [Suspect]
     Indication: AORTIC VALVE REPLACEMENT
     Dosage: DEPENDING ON INR
     Dates: start: 19960101
  3. PLAVIX [Suspect]
     Indication: CORONARY ARTERIAL STENT INSERTION
     Dosage: 75 MG DAILY PO
     Route: 048
     Dates: start: 20031201
  4. CEDUR - SLOW RELEASE [Suspect]
     Indication: HYPERCHOLESTEROLAEMIA
     Dosage: 400 MG DAILY PO
     Route: 048
  5. ZOLOFT [Suspect]
     Indication: DEPRESSION
     Dosage: 50 MG DAILY PO, A FEW MONTHS
     Route: 048
  6. BELOC [Concomitant]
  7. MAXIPIME [Concomitant]
  8. ACETAMINOPHEN [Concomitant]
  9. TEMGESIC [Concomitant]
  10. RIVOTRIL [Concomitant]
  11. SODIUM POLYSTYRENE SULFONATE [Concomitant]
  12. CALCIUM ACETATE [Concomitant]
  13. RECORMON [Concomitant]

REACTIONS (18)
  - ANAEMIA [None]
  - CAROTID ARTERY STENOSIS [None]
  - CORONARY ARTERIAL STENT INSERTION [None]
  - DEPRESSION [None]
  - DIVERTICULITIS [None]
  - DRUG INTERACTION [None]
  - EPISTAXIS [None]
  - GLOMERULONEPHROPATHY [None]
  - HAEMODIALYSIS [None]
  - HYPERCHOLESTEROLAEMIA [None]
  - HYPERKALAEMIA [None]
  - HYPERPHOSPHATAEMIA [None]
  - HYPERTENSION [None]
  - INFECTION [None]
  - INTERNATIONAL NORMALISED RATIO INCREASED [None]
  - PAIN [None]
  - PROTHROMBIN TIME PROLONGED [None]
  - RENAL FAILURE [None]
